FAERS Safety Report 10066239 (Version 2)
Quarter: 2014Q3

REPORT INFORMATION
  Report Type: Spontaneous
  Country: JP (occurrence: JP)
  Receive Date: 20140408
  Receipt Date: 20140911
  Transmission Date: 20150326
  Serious: Yes (Death, Hospitalization, Other)
  Sender: FDA-Public Use
  Company Number: PHHY2014JP040371

PATIENT
  Age: 68 Year
  Sex: Male

DRUGS (6)
  1. SUNITINIB [Suspect]
     Active Substance: SUNITINIB
     Indication: GASTROINTESTINAL STROMAL TUMOUR
     Dosage: 25 MG, QD
  2. FOY [Suspect]
     Active Substance: GABEXATE MESYLATE
     Indication: DISSEMINATED INTRAVASCULAR COAGULATION
  3. GLIVEC [Suspect]
     Active Substance: IMATINIB MESYLATE
     Indication: GASTROINTESTINAL STROMAL TUMOUR
     Dosage: 400 MG, QD
     Route: 048
  4. SUNITINIB [Suspect]
     Active Substance: SUNITINIB
     Dosage: 37.5 MG, QD
  5. FEBUXOSTAT. [Concomitant]
     Active Substance: FEBUXOSTAT
     Indication: TUMOUR LYSIS SYNDROME
  6. GLIVEC [Suspect]
     Active Substance: IMATINIB MESYLATE
     Dosage: 400 MG, DAILY
     Route: 048

REACTIONS (8)
  - Decreased appetite [Unknown]
  - Cardiac failure [Unknown]
  - Malaise [Unknown]
  - Disseminated intravascular coagulation [Not Recovered/Not Resolved]
  - Metastases to liver [Unknown]
  - Tumour lysis syndrome [Unknown]
  - Death [Fatal]
  - Drug ineffective [Unknown]
